FAERS Safety Report 14080768 (Version 1)
Quarter: 2017Q4

REPORT INFORMATION
  Report Type: Spontaneous
  Country: FR (occurrence: FR)
  Receive Date: 20171012
  Receipt Date: 20171012
  Transmission Date: 20180321
  Serious: Yes (Hospitalization)
  Sender: FDA-Public Use
  Company Number: FR-ELI_LILLY_AND_COMPANY-FR201710001240

PATIENT
  Age: 41 Year
  Sex: Male

DRUGS (5)
  1. TERALITHE [Suspect]
     Active Substance: LITHIUM CARBONATE
     Indication: PRODUCT USED FOR UNKNOWN INDICATION
     Dosage: 60 DF, UNK
     Route: 048
     Dates: start: 20170603, end: 20170603
  2. LAMALINE [Concomitant]
     Active Substance: ACETAMINOPHEN\CAFFEINE\OPIUM
     Dosage: 16 DF, UNKNOWN
     Dates: start: 20170603, end: 20170603
  3. METFORMINE [Suspect]
     Active Substance: METFORMIN HYDROCHLORIDE
     Indication: PRODUCT USED FOR UNKNOWN INDICATION
     Dosage: 30 DF, UNK
     Route: 048
     Dates: start: 20170603, end: 20170603
  4. ZYPREXA [Suspect]
     Active Substance: OLANZAPINE
     Indication: PRODUCT USED FOR UNKNOWN INDICATION
     Dosage: 28 DF, UNKNOWN
     Route: 048
     Dates: start: 20170603, end: 20170603
  5. CODOLIPRANE [Concomitant]
     Active Substance: ACETAMINOPHEN\CODEINE PHOSPHATE
     Dosage: 40 DF, UNK
     Route: 065
     Dates: start: 20170603, end: 20170603

REACTIONS (11)
  - Somnolence [Recovered/Resolved]
  - Acute kidney injury [Recovered/Resolved]
  - Abdominal pain [Unknown]
  - Sinus tachycardia [Recovered/Resolved]
  - Lactic acidosis [Recovered/Resolved]
  - Antipsychotic drug level increased [Recovered/Resolved]
  - Dehydration [Unknown]
  - Hepatocellular injury [Recovered/Resolved]
  - Intentional overdose [Unknown]
  - Poisoning deliberate [Recovered/Resolved]
  - Rhabdomyolysis [Recovered/Resolved]

NARRATIVE: CASE EVENT DATE: 20170603
